FAERS Safety Report 4769849-X (Version None)
Quarter: 2005Q3

REPORT INFORMATION
  Report Type: 
  Country: None (occurrence: None)
  Receive Date: 20050912
  Receipt Date: 20050809
  Transmission Date: 20060218
  Serious: No
  Sender: FDA-Public Use
  Company Number: 2005-01695

PATIENT
  Age: 71 Year
  Sex: Male

DRUGS (2)
  1. VELCADE [Suspect]
     Indication: MULTIPLE MYELOMA
     Dosage: 8 CYCLES
     Dates: start: 20041001, end: 20050201
  2. THALOMID [Suspect]
     Indication: MULTIPLE MYELOMA
     Dosage: 100.00 MG QD ORAL
     Route: 048
     Dates: start: 20030101

REACTIONS (2)
  - BLOOD COUNT ABNORMAL [None]
  - DIARRHOEA [None]
